APPROVED DRUG PRODUCT: DEXONE 0.5
Active Ingredient: DEXAMETHASONE
Strength: 0.5MG
Dosage Form/Route: TABLET;ORAL
Application: A084991 | Product #001
Applicant: SOLVAY PHARMACEUTICALS
Approved: Approved Prior to Jan 1, 1982 | RLD: No | RS: No | Type: DISCN